FAERS Safety Report 25498765 (Version 1)
Quarter: 2025Q3

REPORT INFORMATION
  Report Type: Spontaneous
  Country: US (occurrence: US)
  Receive Date: 20250701
  Receipt Date: 20250701
  Transmission Date: 20251020
  Serious: No
  Sender: ELI LILLY AND COMPANY
  Company Number: US-ELI_LILLY_AND_COMPANY-US202506016925

PATIENT
  Age: 56 Year
  Sex: Female

DRUGS (4)
  1. ZEPBOUND [Suspect]
     Active Substance: TIRZEPATIDE
     Indication: Alopecia universalis
     Route: 065
     Dates: start: 20240210
  2. ZEPBOUND [Suspect]
     Active Substance: TIRZEPATIDE
     Indication: Alopecia universalis
     Route: 065
     Dates: start: 20240210
  3. ZEPBOUND [Suspect]
     Active Substance: TIRZEPATIDE
     Indication: Alopecia universalis
     Route: 065
     Dates: start: 20240210
  4. ZEPBOUND [Suspect]
     Active Substance: TIRZEPATIDE
     Indication: Alopecia universalis
     Route: 065
     Dates: start: 20240210

REACTIONS (3)
  - Off label use [Unknown]
  - Trichorrhexis [Not Recovered/Not Resolved]
  - Alopecia [Not Recovered/Not Resolved]

NARRATIVE: CASE EVENT DATE: 20240210
